FAERS Safety Report 19470378 (Version 1)
Quarter: 2021Q2

REPORT INFORMATION
  Report Type: Spontaneous
  Country: DE (occurrence: DE)
  Receive Date: 20210629
  Receipt Date: 20210629
  Transmission Date: 20210717
  Serious: Yes (Life-Threatening)
  Sender: FDA-Public Use
  Company Number: DE-AUROBINDO-AUR-APL-2021-026922

PATIENT

DRUGS (26)
  1. DOXORUBICIN [Suspect]
     Active Substance: DOXORUBICIN
     Indication: CENTRAL NERVOUS SYSTEM LYMPHOMA
     Dosage: UNK
     Route: 065
  2. RITUXIMAB. [Suspect]
     Active Substance: RITUXIMAB
     Indication: DIFFUSE LARGE B-CELL LYMPHOMA
  3. RITUXIMAB. [Suspect]
     Active Substance: RITUXIMAB
     Dosage: 1400 MILLIGRAM (DAY 1 (RCHOP X 4 CYCLES)
     Route: 058
  4. VINCRISTINE [Suspect]
     Active Substance: VINCRISTINE
     Indication: DIFFUSE LARGE B-CELL LYMPHOMA
     Dosage: UNK (2/1 MG ABS, DAY 1 (R?CHOP)
     Route: 042
  5. CYCLOPHOSPHAMIDE. [Suspect]
     Active Substance: CYCLOPHOSPHAMIDE
     Indication: CENTRAL NERVOUS SYSTEM LYMPHOMA
     Dosage: UNK
     Route: 065
  6. METHOTREXATE. [Suspect]
     Active Substance: METHOTREXATE
     Indication: DIFFUSE LARGE B-CELL LYMPHOMA
     Dosage: 4 GRAM PER SQUARE METRE (R?MTX 4  (DAY 1) )
     Route: 065
  7. PREDNISONE. [Suspect]
     Active Substance: PREDNISONE
     Indication: DIFFUSE LARGE B-CELL LYMPHOMA
     Dosage: 100 MILLIGRAM (ABS, DAYS 1?5 (R?CHOP)
     Route: 042
  8. RITUXIMAB. [Suspect]
     Active Substance: RITUXIMAB
     Indication: CENTRAL NERVOUS SYSTEM LYMPHOMA
     Dosage: 1400 MILLIGRAM (ABS, DAY 7 (R?HD?BCNU/TTX 2 CYCLES)
     Route: 058
  9. THIOTEPA. [Suspect]
     Active Substance: THIOTEPA
     Indication: DIFFUSE LARGE B-CELL LYMPHOMA
     Dosage: 40 MILLIGRAM/SQ. METER (DAY 2 (R?ARAC/TT)
     Route: 065
  10. RITUXIMAB. [Suspect]
     Active Substance: RITUXIMAB
     Indication: CENTRAL NERVOUS SYSTEM LYMPHOMA
     Dosage: 375 MILLIGRAM/SQ. METER (DAY 0  (R?MTXX 4 CYCLES)
     Route: 042
  11. ACICLOVIR [Suspect]
     Active Substance: ACYCLOVIR
     Indication: PROPHYLAXIS
     Dosage: 800 MILLIGRAM (2X A DAY)
     Route: 065
  12. DOXORUBICIN [Suspect]
     Active Substance: DOXORUBICIN
     Indication: DIFFUSE LARGE B-CELL LYMPHOMA
     Dosage: 50 MILLIGRAM/SQ. METER (DAY 1 (R?CHOP)
     Route: 042
  13. THIOTEPA. [Suspect]
     Active Substance: THIOTEPA
     Indication: CENTRAL NERVOUS SYSTEM LYMPHOMA
     Dosage: UNK (2X5 MG/M2, DAY ?5/?4  (R?HD?BCNU/TT)
     Route: 065
  14. FOLINIC ACID [Suspect]
     Active Substance: LEUCOVORIN
     Indication: PRODUCT USED FOR UNKNOWN INDICATION
     Dosage: UNK (RESCUE DOSE)
     Route: 065
  15. PREDNISONE. [Suspect]
     Active Substance: PREDNISONE
     Indication: CENTRAL NERVOUS SYSTEM LYMPHOMA
     Dosage: UNK
     Route: 065
  16. RITUXIMAB. [Suspect]
     Active Substance: RITUXIMAB
     Indication: DIFFUSE LARGE B-CELL LYMPHOMA
     Dosage: 1400 MILLIGRAM (DAY 0 (R?MTXX 4 CYCLES)
     Route: 058
  17. VINCRISTINE [Suspect]
     Active Substance: VINCRISTINE
     Indication: CENTRAL NERVOUS SYSTEM LYMPHOMA
     Dosage: UNK
     Route: 065
  18. CARMUSTINE. [Suspect]
     Active Substance: CARMUSTINE
     Indication: DIFFUSE LARGE B-CELL LYMPHOMA
     Dosage: 400 MILLIGRAM/SQ. METER ( DAY ?6 (R?HD?BCNU/TT)
     Route: 065
  19. CYCLOPHOSPHAMIDE. [Suspect]
     Active Substance: CYCLOPHOSPHAMIDE
     Indication: DIFFUSE LARGE B-CELL LYMPHOMA
     Dosage: 750 MILLIGRAM/SQ. METER (DAY 1 (R?CHOP)
     Route: 042
  20. CYTARABINE. [Suspect]
     Active Substance: CYTARABINE
     Indication: DIFFUSE LARGE B-CELL LYMPHOMA
     Dosage: 4 GRAM PER SQUARE METRE (R?ARAC/TT 4 (DAYS 1?2)
     Route: 065
  21. CYTARABINE. [Suspect]
     Active Substance: CYTARABINE
     Indication: CENTRAL NERVOUS SYSTEM LYMPHOMA
     Dosage: UNK
     Route: 065
  22. METHOTREXATE. [Suspect]
     Active Substance: METHOTREXATE
     Indication: CENTRAL NERVOUS SYSTEM LYMPHOMA
     Dosage: UNK
     Route: 065
  23. CARMUSTINE. [Suspect]
     Active Substance: CARMUSTINE
     Indication: CENTRAL NERVOUS SYSTEM LYMPHOMA
     Dosage: UNK
     Route: 065
  24. DEPOCYTE [Suspect]
     Active Substance: CYTARABINE
     Indication: PRODUCT USED FOR UNKNOWN INDICATION
     Dosage: UNK (ADDITIONAL THERAPY)
     Route: 065
  25. GRANULOCYTE COLONY STIMULATING FACTOR [Suspect]
     Active Substance: GRANULOCYTE COLONY-STIMULATING FACTOR NOS
     Indication: STEM CELL THERAPY
     Dosage: 10 MICROGRAM/KILOGRAM (BODY WEIGHT)
     Route: 065
  26. RITUXIMAB. [Suspect]
     Active Substance: RITUXIMAB
     Dosage: 1400 MILLIGRAM (ABS, DAY 1 (R?ARAC/TTX 2 CYCLES)
     Route: 058

REACTIONS (1)
  - Haematotoxicity [Unknown]
